FAERS Safety Report 8371208-8 (Version None)
Quarter: 2012Q2

REPORT INFORMATION
  Report Type: 
  Country: None (occurrence: None)
  Receive Date: 20120518
  Receipt Date: 20120516
  Transmission Date: 20120825
  Serious: Yes (Hospitalization)
  Sender: FDA-Public Use
  Company Number: PHHY2012US041852

PATIENT
  Age: 62 Year
  Sex: Male

DRUGS (1)
  1. CIPROFLOXACIN [Suspect]
     Indication: URINARY TRACT INFECTION

REACTIONS (11)
  - PARAESTHESIA [None]
  - HYPOAESTHESIA [None]
  - SENSORY LOSS [None]
  - MUSCULAR WEAKNESS [None]
  - ALTERED VISUAL DEPTH PERCEPTION [None]
  - AREFLEXIA [None]
  - POLYNEUROPATHY [None]
  - LOSS OF PROPRIOCEPTION [None]
  - QUADRIPARESIS [None]
  - ATAXIA [None]
  - GUILLAIN-BARRE SYNDROME [None]
